FAERS Safety Report 9517525 (Version 1)
Quarter: 2013Q3

REPORT INFORMATION
  Report Type: Spontaneous
  Country: US (occurrence: US)
  Receive Date: 20130911
  Receipt Date: 20130911
  Transmission Date: 20140515
  Serious: Yes (Other)
  Sender: FDA-Public Use
  Company Number: US-ABBOTT-13P-163-1143371-00

PATIENT
  Age: 83 Year
  Sex: Female
  Weight: 70.37 kg

DRUGS (1)
  1. HUMIRA [Suspect]
     Indication: ANKYLOSING SPONDYLITIS
     Dates: start: 201303

REACTIONS (8)
  - Precancerous skin lesion [Not Recovered/Not Resolved]
  - Wheezing [Recovered/Resolved]
  - Actinic keratosis [Not Recovered/Not Resolved]
  - Back pain [Recovering/Resolving]
  - Pain in extremity [Recovered/Resolved with Sequelae]
  - Rash [Unknown]
  - Vitamin B complex deficiency [Unknown]
  - Diabetes mellitus [Not Recovered/Not Resolved]
